FAERS Safety Report 8302316-5 (Version None)
Quarter: 2012Q1

REPORT INFORMATION
  Report Type: 
  Country: None (occurrence: None)
  Receive Date: 20120326
  Receipt Date: 20110429
  Transmission Date: 20120608
  Serious: Yes (Other)
  Sender: FDA-Public Use
  Company Number: PHHY2011US18200

PATIENT
  Age: 50 Year
  Sex: Female

DRUGS (2)
  1. VIVELLE-DOT [Suspect]
     Dosage: 0.05 MG, QW2 ; 0.075 MG, QW2
     Dates: start: 20101201
  2. VIVELLE-DOT [Suspect]
     Dosage: 0.05 MG, QW2 ; 0.075 MG, QW2
     Dates: start: 20101201

REACTIONS (4)
  - DEPRESSION [None]
  - POOR QUALITY SLEEP [None]
  - MOOD SWINGS [None]
  - DECREASED INTEREST [None]
